FAERS Safety Report 4966637-6 (Version None)
Quarter: 2006Q1

REPORT INFORMATION
  Report Type: 
  Country: None (occurrence: None)
  Receive Date: 20060201
  Receipt Date: 20051212
  Transmission Date: 20060701
  Serious: No
  Sender: FDA-Public Use
  Company Number: 2005PV005770

PATIENT
  Age: 63 Year
  Sex: Female
  Weight: 97.5234 kg

DRUGS (12)
  1. BYETTA [Suspect]
     Indication: DIABETES MELLITUS NON-INSULIN-DEPENDENT
     Dosage: 5 MCG; BID; SC
     Route: 058
     Dates: start: 20051208, end: 20051229
  2. ISOPTIN SR [Concomitant]
  3. PREVACID [Concomitant]
  4. ALTACE [Concomitant]
  5. AVANDIA [Concomitant]
  6. FLUROETINE [Concomitant]
  7. HYDROCHLOROTHIAZIDE [Concomitant]
  8. ELAVIL [Concomitant]
  9. AMBIEN [Concomitant]
  10. CENTRUM SILVER [Concomitant]
  11. VILLA [Concomitant]
  12. AMARYL [Concomitant]

REACTIONS (10)
  - BLOOD GLUCOSE DECREASED [None]
  - BLOOD GLUCOSE INCREASED [None]
  - ERYTHEMA [None]
  - FAECAL INCONTINENCE [None]
  - FATIGUE [None]
  - FEELING HOT [None]
  - HYPERHIDROSIS [None]
  - INCONTINENCE [None]
  - NAUSEA [None]
  - VOMITING [None]
